FAERS Safety Report 18186682 (Version 1)
Quarter: 2020Q3

REPORT INFORMATION
  Report Type: Spontaneous
  Country: US (occurrence: US)
  Receive Date: 20200824
  Receipt Date: 20200824
  Transmission Date: 20201103
  Serious: No
  Sender: FDA-Public Use
  Company Number: US-PFIZER INC-2020322394

PATIENT
  Age: 83 Year
  Sex: Female
  Weight: 54.43 kg

DRUGS (4)
  1. TOVIAZ [Suspect]
     Active Substance: FESOTERODINE FUMARATE
     Dosage: 4 MG
     Route: 048
  2. LISINOPRIL. [Concomitant]
     Active Substance: LISINOPRIL
     Indication: BLOOD PRESSURE ABNORMAL
     Dosage: 5 MG, 2X/DAY(5MG TWICE DAILY)
     Dates: start: 202002
  3. TOVIAZ [Suspect]
     Active Substance: FESOTERODINE FUMARATE
     Indication: URINARY INCONTINENCE
     Dosage: 16 MG, DAILY (SHE WAS TAKING 2 DAILY)
  4. TOVIAZ [Suspect]
     Active Substance: FESOTERODINE FUMARATE
     Dosage: 8 MG, 1X/DAY (SHE WENT BACK ON IT BUT ONLY TAKES 1 A DAY)

REACTIONS (9)
  - Dyspepsia [Unknown]
  - Decreased appetite [Unknown]
  - Illness [Not Recovered/Not Resolved]
  - Balance disorder [Unknown]
  - Off label use [Unknown]
  - Hypoaesthesia [Unknown]
  - Weight decreased [Unknown]
  - Dizziness [Unknown]
  - Intentional product misuse [Unknown]
